FAERS Safety Report 7097828-9 (Version None)
Quarter: 2010Q4

REPORT INFORMATION
  Report Type: 
  Country: None (occurrence: None)
  Receive Date: 20101103
  Receipt Date: 20101018
  Transmission Date: 20110411
  Serious: Yes (Other)
  Sender: FDA-Public Use
  Company Number: 2010S1005200

PATIENT
  Sex: Male

DRUGS (14)
  1. PHOSPHOSODA FLAVOR NOT SPECIFIED [Suspect]
     Indication: COLONOSCOPY
     Dosage: 90 ML; TOTAL; PO
     Route: 048
     Dates: start: 20030129, end: 20030129
  2. FLEET ENEMA (SODIUM PHOSPHATE) [Suspect]
     Indication: PRODUCT USED FOR UNKNOWN INDICATION
     Dosage: RTL
     Route: 054
     Dates: start: 19920101, end: 20030101
  3. FLEET EMEMA (SODIUM PHOSPHATE) [Concomitant]
  4. PROTONIX [Concomitant]
  5. LORTAB [Concomitant]
  6. ACETAMINOPHEN [Concomitant]
  7. TRAMADOL HCL [Concomitant]
  8. HYDROCODONE [Concomitant]
  9. ULTRAM [Concomitant]
  10. CIPRO [Concomitant]
  11. FLAGYL [Concomitant]
  12. VIAGRA [Concomitant]
  13. VALIUM [Concomitant]
  14. PEPCID [Concomitant]

REACTIONS (1)
  - RENAL FAILURE ACUTE [None]
